FAERS Safety Report 24247122 (Version 2)
Quarter: 2024Q4

REPORT INFORMATION
  Report Type: Spontaneous
  Country: JP (occurrence: JP)
  Receive Date: 20240826
  Receipt Date: 20241024
  Transmission Date: 20250115
  Serious: Yes (Hospitalization, Other)
  Sender: JUBILANT
  Company Number: JP-JUBILANT CADISTA PHARMACEUTICALS-2024JP001193

PATIENT
  Age: 8 Decade
  Sex: Male

DRUGS (14)
  1. RISPERIDONE [Interacting]
     Active Substance: RISPERIDONE
     Indication: Product used for unknown indication
     Dosage: 1 MG, ONCE PER DAY
     Route: 065
  2. AMANTADINE [Interacting]
     Active Substance: AMANTADINE
     Indication: Parkinson^s disease
     Dosage: 200 MG, ONCE PER DAY
  3. AMLODIPINE [Interacting]
     Active Substance: AMLODIPINE BESYLATE
     Indication: Product used for unknown indication
     Dosage: 5 MG, ONCE PER DAY
  4. VONOPRAZAN [Interacting]
     Active Substance: VONOPRAZAN
     Indication: Product used for unknown indication
     Dosage: 20 MG, ONCE PER DAY
  5. MAGNESIUM OXIDE [Interacting]
     Active Substance: MAGNESIUM OXIDE
     Indication: Product used for unknown indication
     Dosage: 1.32 G, ONCE PER DAY
  6. STALEVO [Interacting]
     Active Substance: CARBIDOPA\ENTACAPONE\LEVODOPA
     Indication: Product used for unknown indication
     Dosage: LEVODOPA 600 MG/DAY, ENTAKAPON 600 MG/DAY
  7. SENNOSIDES [Interacting]
     Active Substance: SENNOSIDES
     Indication: Product used for unknown indication
     Dosage: 24 MG, ONCE PER DAY
  8. ELOBIXIBAT [Interacting]
     Active Substance: ELOBIXIBAT
     Indication: Product used for unknown indication
     Dosage: 10 MG, ONCE PER DAY
  9. LUBIPROSTONE [Interacting]
     Active Substance: LUBIPROSTONE
     Indication: Product used for unknown indication
     Dosage: 24 MG, ONCE PER DAY
  10. FENOFIBRATE [Interacting]
     Active Substance: FENOFIBRATE
     Indication: Product used for unknown indication
     Dosage: 160 MG ONCE PER DAY
  11. ISTRADEFYLLINE [Interacting]
     Active Substance: ISTRADEFYLLINE
     Indication: Product used for unknown indication
     Dosage: 40 MG ONCE PER DAY
  12. RASAGILINE [Interacting]
     Active Substance: RASAGILINE
     Indication: Product used for unknown indication
     Dosage: 1 MG ONCE PER DAY
  13. DROXIDOPA [Interacting]
     Active Substance: DROXIDOPA
     Indication: Orthostatic hypotension
     Dosage: 100 MG ONCE PER DAY
  14. MOSAPRIDE [Interacting]
     Active Substance: MOSAPRIDE
     Indication: Product used for unknown indication
     Dosage: 5 MG ONCE PER DAY

REACTIONS (8)
  - Toxicity to various agents [Recovering/Resolving]
  - Drug interaction [Recovering/Resolving]
  - Decreased appetite [Recovering/Resolving]
  - Cerebral atrophy [Recovering/Resolving]
  - Epilepsy [Recovered/Resolved]
  - Delirium [Recovered/Resolved]
  - Renal impairment [Recovering/Resolving]
  - Generalised tonic-clonic seizure [Recovered/Resolved]
